FAERS Safety Report 8267222-3 (Version None)
Quarter: 2012Q2

REPORT INFORMATION
  Report Type: 
  Country: None (occurrence: None)
  Receive Date: 20120409
  Receipt Date: 20120329
  Transmission Date: 20120825
  Serious: Yes (Other)
  Sender: FDA-Public Use
  Company Number: JP-VERTEX PHARMACEUTICALS INC.-AE-2012-004719

PATIENT
  Age: 56 Year
  Sex: Male

DRUGS (6)
  1. EPADEL [Concomitant]
     Route: 048
     Dates: start: 20120202
  2. TELAVIC (TELAPREVIR) [Suspect]
     Route: 048
     Dates: start: 20120315
  3. REBETOL [Concomitant]
     Route: 048
     Dates: start: 20120308
  4. TELAVIC (TELAPREVIR) [Suspect]
     Indication: HEPATITIS C
     Route: 048
     Dates: start: 20120202, end: 20120314
  5. REBETOL [Concomitant]
     Indication: HEPATITIS C
     Route: 048
     Dates: start: 20120202, end: 20120307
  6. PEGINTERFERON [Concomitant]
     Indication: HEPATITIS C
     Route: 051
     Dates: start: 20120202

REACTIONS (1)
  - ERYTHEMA MULTIFORME [None]
